FAERS Safety Report 18843725 (Version 1)
Quarter: 2021Q1

REPORT INFORMATION
  Report Type: Spontaneous
  Country: US (occurrence: US)
  Receive Date: 20210204
  Receipt Date: 20210204
  Transmission Date: 20210419
  Serious: No
  Sender: FDA-Public Use
  Company Number: None

PATIENT
  Age: 38 Year
  Sex: Female
  Weight: 65.25 kg

DRUGS (3)
  1. MIRENA [Concomitant]
     Active Substance: LEVONORGESTREL
  2. LEVOFLOXACIN 500MG TABLETS [Suspect]
     Active Substance: LEVOFLOXACIN
     Indication: SINUSITIS
     Dosage: ?          QUANTITY:1 TABLET(S);?
     Route: 048
  3. MULTIVITAMINS [Concomitant]
     Active Substance: VITAMINS

REACTIONS (2)
  - Insomnia [None]
  - Abdominal pain upper [None]

NARRATIVE: CASE EVENT DATE: 20210204
